FAERS Safety Report 9269834 (Version 1)
Quarter: 2013Q2

REPORT INFORMATION
  Report Type: Report from Study
  Country: CA (occurrence: CA)
  Receive Date: 20130503
  Receipt Date: 20130503
  Transmission Date: 20140414
  Serious: Yes (Other)
  Sender: FDA-Public Use
  Company Number: CA-JNJFOC-20130417183

PATIENT
  Age: 51 Year
  Sex: Female
  Weight: 79.7 kg

DRUGS (4)
  1. REMICADE [Suspect]
     Indication: RHEUMATOID ARTHRITIS
     Route: 042
     Dates: start: 20080512
  2. METHOTREXATE [Concomitant]
     Route: 065
  3. FOLIC ACID [Concomitant]
     Route: 065
  4. PLAQUENIL [Concomitant]
     Route: 065

REACTIONS (2)
  - Mole excision [Recovered/Resolved]
  - Dental care [Unknown]
